FAERS Safety Report 5244172-8 (Version None)
Quarter: 2007Q1

REPORT INFORMATION
  Report Type: 
  Country: None (occurrence: None)
  Receive Date: 20070222
  Receipt Date: 20070220
  Transmission Date: 20070707
  Serious: Yes (Life-Threatening, Other)
  Sender: FDA-Public Use
  Company Number: US-GLAXOSMITHKLINE-A0638150A

PATIENT
  Age: 58 Year
  Sex: Female
  Weight: 93.6 kg

DRUGS (3)
  1. ADVAIR DISKUS 100/50 [Suspect]
     Indication: ASTHMA
     Route: 055
     Dates: start: 20070101, end: 20070101
  2. AVELOX [Concomitant]
     Indication: BRONCHITIS
     Route: 048
     Dates: start: 20070130, end: 20070130
  3. DIOVAN [Concomitant]
     Route: 048
     Dates: start: 20070125

REACTIONS (3)
  - ANAPHYLACTIC REACTION [None]
  - NAIL DISCOLOURATION [None]
  - SWELLING [None]
